FAERS Safety Report 4443466-3 (Version None)
Quarter: 2004Q3

REPORT INFORMATION
  Report Type: 
  Country: None (occurrence: None)
  Receive Date: 20040901
  Receipt Date: 20040824
  Transmission Date: 20050211
  Serious: No
  Sender: FDA-Public Use
  Company Number: 2004UW18027

PATIENT
  Sex: Female

DRUGS (2)
  1. IRESSA [Suspect]
     Indication: LUNG ADENOCARCINOMA
     Dosage: 500 MG DAILY PO
     Route: 048
  2. IRESSA [Suspect]
     Indication: METASTASES TO LIVER
     Dosage: 500 MG DAILY PO
     Route: 048

REACTIONS (2)
  - CENTRAL PONTINE MYELINOLYSIS [None]
  - DYSARTHRIA [None]
